FAERS Safety Report 16223298 (Version 3)
Quarter: 2019Q3

REPORT INFORMATION
  Report Type: Spontaneous
  Country: US (occurrence: US)
  Receive Date: 20190422
  Receipt Date: 20190715
  Transmission Date: 20191004
  Serious: No
  Sender: FDA-Public Use
  Company Number: US-PFIZER INC-2019166109

PATIENT
  Sex: Female
  Weight: 68.4 kg

DRUGS (2)
  1. METOPROLOL TARTRATE. [Suspect]
     Active Substance: METOPROLOL TARTRATE
     Indication: PALPITATIONS
     Dosage: 20 MG, 1X/DAY
     Dates: start: 2018
  2. METOPROLOL TARTRATE. [Suspect]
     Active Substance: METOPROLOL TARTRATE
     Indication: PULMONARY VASCULAR DISORDER

REACTIONS (3)
  - Product use in unapproved indication [Unknown]
  - Drug ineffective [Unknown]
  - Off label use [Unknown]
